FAERS Safety Report 6203037-5 (Version None)
Quarter: 2009Q2

REPORT INFORMATION
  Report Type: 
  Country: None (occurrence: None)
  Receive Date: 20090527
  Receipt Date: 20090519
  Transmission Date: 20091009
  Serious: Yes (Death, Other)
  Sender: FDA-Public Use
  Company Number: US-RANBAXY-2009US-21394

PATIENT

DRUGS (6)
  1. ALPRAZOLAM [Suspect]
     Indication: DRUG USE FOR UNKNOWN INDICATION
     Dosage: UNK, UNK
     Route: 051
  2. COCAINE [Suspect]
     Indication: DRUG USE FOR UNKNOWN INDICATION
     Route: 051
  3. HALOPERIDOL [Suspect]
     Indication: DELUSION
     Route: 051
  4. HALOPERIDOL [Suspect]
     Indication: HALLUCINATION
  5. LORAZEPAM [Suspect]
     Indication: DELUSION
     Dosage: 2 MG, UNK
     Route: 048
  6. LORAZEPAM [Suspect]
     Indication: HALLUCINATION

REACTIONS (4)
  - ADVERSE DRUG REACTION [None]
  - CARDIAC ARREST [None]
  - DELUSION [None]
  - HALLUCINATION [None]
